FAERS Safety Report 9087534 (Version 1)
Quarter: 2013Q1

REPORT INFORMATION
  Report Type: Spontaneous
  Country: US (occurrence: US)
  Receive Date: 20130201
  Receipt Date: 20130201
  Transmission Date: 20140127
  Serious: No
  Sender: FDA-Public Use
  Company Number: US-ABBOTT-12P-163-1021339-00

PATIENT
  Age: 83 Year
  Sex: Male

DRUGS (11)
  1. HUMIRA [Suspect]
     Indication: CROHN^S DISEASE
     Dates: start: 20121210
  2. METFORMIN [Concomitant]
     Indication: TYPE 2 DIABETES MELLITUS
  3. OMEPRAZOLE [Concomitant]
     Indication: GASTRIC DISORDER
  4. ATENOLOL [Concomitant]
     Indication: BLOOD PRESSURE
  5. LEVOTHYRPOXINE [Concomitant]
     Indication: THYROID DISORDER
  6. ZOLOFT [Concomitant]
     Indication: OBSESSIVE-COMPULSIVE DISORDER
  7. SAW PALMETTO [Concomitant]
     Indication: VITAMIN SUPPLEMENTATION
  8. MUTLIVITAMIN [Concomitant]
     Indication: PRODUCT USED FOR UNKNOWN INDICATION
  9. MESLAMINE [Concomitant]
     Indication: COLITIS
  10. SIMVASTATIN [Concomitant]
     Indication: BLOOD CHOLESTEROL
     Dosage: QPM
  11. TRAZODONE [Concomitant]
     Indication: INSOMNIA
     Dosage: QPM

REACTIONS (3)
  - Dizziness [Recovered/Resolved]
  - Injection site pain [Unknown]
  - Abdominal pain upper [Recovered/Resolved]
